FAERS Safety Report 10179816 (Version 2)
Quarter: 2014Q2

REPORT INFORMATION
  Report Type: Spontaneous
  Country: US (occurrence: None)
  Receive Date: 20140515
  Receipt Date: 20140612
  Transmission Date: 20141212
  Serious: Yes (Other)
  Sender: FDA-Public Use
  Company Number: UTC-048449

PATIENT
  Age: 66 Year
  Sex: Female
  Weight: 70.8 kg

DRUGS (4)
  1. REMODULIN [Suspect]
     Indication: COR PULMONALE CHRONIC
     Dosage: (0.07 UG/KG, 1 IN 1 MIN)?
     Route: 041
     Dates: start: 20100414
  2. REVATIO [Concomitant]
  3. FLONAN (EPOPROSTENOL SODIUM) [Concomitant]
  4. COUMADIN (WARFARIN SODIUM) [Concomitant]

REACTIONS (4)
  - Lower limb fracture [None]
  - Upper limb fracture [None]
  - Fall [None]
  - Infection [None]
